FAERS Safety Report 7130655-2 (Version None)
Quarter: 2010Q4

REPORT INFORMATION
  Report Type: 
  Country: None (occurrence: None)
  Receive Date: 20101201
  Receipt Date: 20101116
  Transmission Date: 20110411
  Serious: Yes (Life-Threatening, Hospitalization)
  Sender: FDA-Public Use
  Company Number: DE-PFIZER INC-2010160540

PATIENT
  Age: 28 Year
  Sex: Female

DRUGS (2)
  1. SERTRALINE [Suspect]
     Dosage: UNK
  2. OLANZAPINE [Suspect]
     Dosage: UNK

REACTIONS (8)
  - CARDIOVASCULAR INSUFFICIENCY [None]
  - COMA [None]
  - NEUROLEPTIC MALIGNANT SYNDROME [None]
  - OLIGURIA [None]
  - OVERDOSE [None]
  - PNEUMONIA STAPHYLOCOCCAL [None]
  - SEROTONIN SYNDROME [None]
  - SUICIDE ATTEMPT [None]
